FAERS Safety Report 10053449 (Version 1)
Quarter: 2014Q2

REPORT INFORMATION
  Report Type: Spontaneous
  Country: GB (occurrence: GB)
  Receive Date: 20140402
  Receipt Date: 20140402
  Transmission Date: 20141212
  Serious: Yes (Life-Threatening, Hospitalization)
  Sender: FDA-Public Use
  Company Number: GB-ACTAVIS-2014-06082

PATIENT
  Age: 78 Year
  Sex: Male

DRUGS (12)
  1. ACETYLSALICYLIC ACID [Suspect]
     Indication: PRODUCT USED FOR UNKNOWN INDICATION
     Dosage: UNK
     Route: 048
     Dates: start: 20001205
  2. CARBOPLATIN (UNKNOWN) [Suspect]
     Indication: PRODUCT USED FOR UNKNOWN INDICATION
     Dosage: 540 MG, UNKNOWN
     Route: 065
     Dates: start: 20090512
  3. CARBOPLATIN (UNKNOWN) [Suspect]
     Dosage: 540 MG, UNKNOWN
     Route: 065
     Dates: start: 20090519
  4. CARBOPLATIN (UNKNOWN) [Suspect]
     Dosage: UNK
     Route: 065
     Dates: start: 20090212
  5. CARBOPLATIN (UNKNOWN) [Suspect]
     Dosage: UNK
     Route: 065
     Dates: start: 2009
  6. GEMCITABINE (UNKNOWN) [Suspect]
     Indication: PRODUCT USED FOR UNKNOWN INDICATION
     Dosage: 2394 MG, UNKNOWN
     Route: 065
     Dates: start: 20090512
  7. GEMCITABINE (UNKNOWN) [Suspect]
     Dosage: 2394 MG, UNKNOWN
     Route: 065
     Dates: start: 20090519
  8. GEMCITABINE (UNKNOWN) [Suspect]
     Dosage: UNK
     Route: 065
     Dates: start: 20090212
  9. GEMCITABINE (UNKNOWN) [Suspect]
     Dosage: UNK
     Route: 065
     Dates: start: 2009
  10. DALTEPARIN SODIUM [Suspect]
     Indication: LUNG NEOPLASM MALIGNANT
     Dosage: 5000 IU, DAILY
     Route: 058
     Dates: start: 20090310
  11. SIMVASTATIN [Concomitant]
     Indication: PRODUCT USED FOR UNKNOWN INDICATION
     Dosage: 70 MG, UNKNOWN
     Route: 065
  12. SOTALOL [Concomitant]
     Indication: PRODUCT USED FOR UNKNOWN INDICATION
     Dosage: 80 MG, UNKNOWN
     Route: 065
     Dates: start: 20000224

REACTIONS (4)
  - Neutrophil count decreased [Recovered/Resolved]
  - Epistaxis [Recovered/Resolved]
  - Platelet count decreased [Recovered/Resolved]
  - White blood cell count decreased [Recovered/Resolved]
